FAERS Safety Report 9730929 (Version 2)
Quarter: 2014Q1

REPORT INFORMATION
  Report Type: Spontaneous
  Country: GB (occurrence: GB)
  Receive Date: 20131205
  Receipt Date: 20140106
  Transmission Date: 20141002
  Serious: Yes (Hospitalization, Other)
  Sender: FDA-Public Use
  Company Number: GB-B.I. PHARMACEUTICALS,INC./RIDGEFIELD-2013-BI-40054UK

PATIENT
  Age: 79 Year
  Sex: Male
  Weight: 102 kg

DRUGS (7)
  1. PRADAXA [Suspect]
     Indication: CEREBROVASCULAR ACCIDENT PROPHYLAXIS
     Dosage: 300 MG
     Route: 048
     Dates: end: 20130225
  2. PRADAXA [Suspect]
     Indication: ATRIAL FIBRILLATION
  3. CLOPIDOGREL [Concomitant]
     Indication: ACUTE CORONARY SYNDROME
     Dosage: 75 MG
     Route: 048
     Dates: start: 20130225
  4. ASPIRIN [Concomitant]
     Indication: ACUTE CORONARY SYNDROME
     Dosage: 75 MG
     Route: 048
     Dates: start: 20130225
  5. LOSARTAN [Concomitant]
     Indication: MYOCARDIAL ISCHAEMIA
     Dosage: 75 MG
     Route: 048
     Dates: start: 20130225
  6. ROSUVASTATIN [Concomitant]
     Indication: MYOCARDIAL ISCHAEMIA
     Dosage: 10 MG
     Route: 048
     Dates: start: 20130225
  7. AMLODIPINE [Concomitant]
     Indication: HYPERTENSION
     Dosage: 10 MG
     Route: 048
     Dates: start: 20130225

REACTIONS (2)
  - Acute myocardial infarction [Not Recovered/Not Resolved]
  - Acute coronary syndrome [Not Recovered/Not Resolved]
